FAERS Safety Report 7898238-4 (Version None)
Quarter: 2011Q4

REPORT INFORMATION
  Report Type: 
  Country: None (occurrence: None)
  Receive Date: 20111107
  Receipt Date: 20111028
  Transmission Date: 20120403
  Serious: Yes (Congenital Anomaly)
  Sender: FDA-Public Use
  Company Number: US-GLAXOSMITHKLINE-A0950656A

PATIENT
  Sex: Male

DRUGS (2)
  1. MULTI-VITAMINS [Concomitant]
     Route: 064
  2. PAXIL [Suspect]
     Indication: DEPRESSION
     Dosage: 20MG UNKNOWN
     Route: 064

REACTIONS (2)
  - HYDRONEPHROSIS [None]
  - PELVI-URETERIC OBSTRUCTION [None]
